FAERS Safety Report 23667828 (Version 1)
Quarter: 2024Q1

REPORT INFORMATION
  Report Type: Spontaneous
  Country: DE (occurrence: DE)
  Receive Date: 20240325
  Receipt Date: 20240325
  Transmission Date: 20240409
  Serious: Yes (Other)
  Sender: FDA-Public Use
  Company Number: DE-EMBRYOTOX-202308507

PATIENT
  Sex: Female
  Weight: 80 kg

DRUGS (4)
  1. TAPENTADOL [Suspect]
     Active Substance: TAPENTADOL
     Indication: Post-acute COVID-19 syndrome
     Dosage: 100 [MG/D (2 X 50 MG/D) ] 2 SEPARATED DOSES
     Route: 048
     Dates: start: 20230906, end: 20231011
  2. DULOXETINE [Suspect]
     Active Substance: DULOXETINE
     Indication: Post-acute COVID-19 syndrome
     Dosage: 30 [MG/D ]/ SINCE 06/22
     Route: 048
     Dates: start: 202206
  3. ETORICOXIB [Suspect]
     Active Substance: ETORICOXIB
     Indication: Post-acute COVID-19 syndrome
     Dosage: 90 [MG/D ]
     Route: 048
     Dates: start: 20230906, end: 20231011
  4. PROMETHAZINE [Suspect]
     Active Substance: PROMETHAZINE HYDROCHLORIDE
     Indication: Post-acute COVID-19 syndrome
     Dosage: 30 [MG/D ]
     Route: 048

REACTIONS (2)
  - Abortion spontaneous [Recovered/Resolved]
  - Exposure during pregnancy [Unknown]
